FAERS Safety Report 19932359 (Version 3)
Quarter: 2021Q4

REPORT INFORMATION
  Report Type: Spontaneous
  Country: JP (occurrence: JP)
  Receive Date: 20211008
  Receipt Date: 20211116
  Transmission Date: 20220303
  Serious: Yes (Other)
  Sender: FDA-Public Use
  Company Number: NVSJ2021JP016386

PATIENT
  Age: 83 Year
  Sex: Male

DRUGS (1)
  1. BEOVU [Suspect]
     Active Substance: BROLUCIZUMAB-DBLL
     Indication: Age-related macular degeneration
     Dosage: 6 MG
     Route: 031

REACTIONS (4)
  - Retinal exudates [Recovering/Resolving]
  - Eye inflammation [Unknown]
  - Vitreous opacities [Not Recovered/Not Resolved]
  - Visual acuity reduced transiently [Unknown]
